FAERS Safety Report 13787427 (Version 1)
Quarter: 2017Q3

REPORT INFORMATION
  Report Type: Spontaneous
  Country: US (occurrence: US)
  Receive Date: 20170725
  Receipt Date: 20170725
  Transmission Date: 20171127
  Serious: No
  Sender: FDA-Public Use
  Company Number: US-UNITED THERAPEUTICS-UNT-2017-000339

PATIENT
  Age: 45 Year
  Sex: Female

DRUGS (6)
  1. REMODULIN [Suspect]
     Active Substance: TREPROSTINIL
     Indication: PULMONARY ARTERIAL HYPERTENSION
     Dosage: 0.006 ?G/KG, CONTINUING
     Route: 058
     Dates: start: 20170104
  2. REMODULIN [Suspect]
     Active Substance: TREPROSTINIL
     Dosage: 0.008 ?G/KG, CONTINUING
     Route: 058
  3. REMODULIN [Suspect]
     Active Substance: TREPROSTINIL
     Dosage: 0.004 ?G/KG, CONTINUING
     Route: 058
  4. LETAIRIS [Suspect]
     Active Substance: AMBRISENTAN
     Indication: PRODUCT USED FOR UNKNOWN INDICATION
     Route: 065
  5. PROMETHAZINE [Suspect]
     Active Substance: PROMETHAZINE\PROMETHAZINE HYDROCHLORIDE
     Indication: NAUSEA
     Dosage: UNK
     Route: 065
     Dates: start: 201701
  6. ADCIRCA [Concomitant]
     Active Substance: TADALAFIL
     Indication: PRODUCT USED FOR UNKNOWN INDICATION

REACTIONS (12)
  - Infusion site erythema [Unknown]
  - Nasal congestion [Unknown]
  - Infusion site pruritus [Recovering/Resolving]
  - Infusion site pain [Recovering/Resolving]
  - Irritable bowel syndrome [Unknown]
  - Dry mouth [Unknown]
  - Fatigue [Unknown]
  - Nausea [Unknown]
  - Hot flush [Unknown]
  - Vomiting [Unknown]
  - Headache [Unknown]
  - Constipation [Unknown]

NARRATIVE: CASE EVENT DATE: 201701
